FAERS Safety Report 10062781 (Version 3)
Quarter: 2014Q2

REPORT INFORMATION
  Report Type: Spontaneous
  Country: US (occurrence: US)
  Receive Date: 20140407
  Receipt Date: 20140530
  Transmission Date: 20141212
  Serious: Yes (Hospitalization, Other)
  Sender: FDA-Public Use
  Company Number: US-BAYER-2014-050423

PATIENT
  Age: 32 Year
  Sex: Female
  Weight: 72.56 kg

DRUGS (1)
  1. MIRENA [Suspect]
     Indication: CONTRACEPTION
     Dosage: 20 MCG/24HR, CONT
     Route: 015
     Dates: start: 200912, end: 201204

REACTIONS (12)
  - Uterine perforation [None]
  - Injury [None]
  - Pain [None]
  - Emotional distress [None]
  - Genital haemorrhage [None]
  - Ectopic pregnancy with contraceptive device [None]
  - Drug ineffective [None]
  - Pelvic fluid collection [None]
  - Device dislocation [None]
  - Device dislocation [None]
  - Abortion spontaneous [None]
  - Psychological trauma [None]
